FAERS Safety Report 5115574-5 (Version None)
Quarter: 2006Q3

REPORT INFORMATION
  Report Type: 
  Country: None (occurrence: None)
  Receive Date: 20060925
  Receipt Date: 20060905
  Transmission Date: 20061208
  Serious: Yes (Other)
  Sender: FDA-Public Use
  Company Number: 2003-12-0450

PATIENT
  Age: 51 Year
  Sex: Female
  Weight: 72 kg

DRUGS (13)
  1. PEG-INTRON [Suspect]
     Indication: NON-HODGKIN'S LYMPHOMA UNSPECIFIED HISTOLOGY INDOLENT STAGE IV
     Dosage: 36 MCG; QW; SC
     Route: 058
     Dates: start: 20031105, end: 20031125
  2. RITUXIMAB [Suspect]
     Indication: NON-HODGKIN'S LYMPHOMA UNSPECIFIED HISTOLOGY INDOLENT STAGE IV
     Dosage: 668 MG; QW; IV
     Route: 042
     Dates: start: 20031120, end: 20031120
  3. ALPRAZOLAM [Concomitant]
  4. MULTIVITAMIN [Concomitant]
  5. FAMOTIDINE [Concomitant]
  6. BUPROPION HYDROCHLORIDE [Concomitant]
  7. ACETAMINOPHEN [Concomitant]
  8. ALBUTEROL W/ IPRATROPIUM [Concomitant]
  9. SENNA [Concomitant]
  10. NORMAL SALINE [Concomitant]
  11. LORAZEPAM [Concomitant]
  12. DIPHENHYDRAMINE HCL [Concomitant]
  13. HYDROCORTISONE [Concomitant]

REACTIONS (3)
  - DRUG INTERACTION [None]
  - DRUG TOXICITY [None]
  - SERUM SICKNESS [None]
